FAERS Safety Report 20536332 (Version 1)
Quarter: 2022Q1

REPORT INFORMATION
  Report Type: Spontaneous
  Country: JP (occurrence: JP)
  Receive Date: 20220302
  Receipt Date: 20220302
  Transmission Date: 20220423
  Serious: Yes (Death)
  Sender: FDA-Public Use
  Company Number: JP-JNJFOC-20210854326

PATIENT
  Age: 55 Year
  Sex: Male

DRUGS (1)
  1. RISPERDAL [Suspect]
     Active Substance: RISPERIDONE
     Indication: Product used for unknown indication
     Dosage: DOSE UNKNOWN
     Route: 048
     Dates: start: 200812, end: 200912

REACTIONS (4)
  - Asphyxia [Fatal]
  - Tardive dyskinesia [Fatal]
  - Dystonia [Fatal]
  - Dysphagia [Fatal]
